FAERS Safety Report 23147109 (Version 1)
Quarter: 2023Q4

REPORT INFORMATION
  Report Type: Report from Study
  Country: US (occurrence: US)
  Receive Date: 20231106
  Receipt Date: 20231106
  Transmission Date: 20240110
  Serious: No
  Sender: FDA-Public Use
  Company Number: US-002147023-NVSC2023US235647

PATIENT
  Age: 47 Year
  Sex: Female

DRUGS (1)
  1. COSENTYX [Suspect]
     Active Substance: SECUKINUMAB
     Indication: Psoriasis
     Dosage: UNK
     Route: 065

REACTIONS (14)
  - Psoriasis [Unknown]
  - Pruritus [Unknown]
  - Swelling [Unknown]
  - Drug ineffective [Unknown]
  - Memory impairment [Unknown]
  - Mood swings [Unknown]
  - Dysphemia [Unknown]
  - Trichorrhexis [Unknown]
  - Vitreous floaters [Unknown]
  - Influenza like illness [Unknown]
  - Illness [Unknown]
  - Fatigue [Unknown]
  - Vomiting [Unknown]
  - Diarrhoea [Unknown]

NARRATIVE: CASE EVENT DATE: 20181111
